FAERS Safety Report 4844484-3 (Version None)
Quarter: 2005Q4

REPORT INFORMATION
  Report Type: 
  Country: None (occurrence: None)
  Receive Date: 20051203
  Receipt Date: 20050629
  Transmission Date: 20060501
  Serious: Yes (Other)
  Sender: FDA-Public Use
  Company Number: PHEH2005US07353

PATIENT
  Age: 64 Year
  Sex: Female
  Weight: 45.351 kg

DRUGS (11)
  1. ZOMETA [Suspect]
     Indication: BREAST CANCER METASTATIC
     Dosage: 4MG QMO
     Route: 042
     Dates: start: 20020520, end: 20050411
  2. PROZAC [Concomitant]
     Dosage: 20 MG, QD
  3. OMEPRAZOL ^AZUPHARMA^ [Concomitant]
     Indication: GASTROOESOPHAGEAL REFLUX DISEASE
     Dosage: 20MG UNK
     Dates: end: 20050708
  4. ALTACE [Concomitant]
  5. CELEBREX [Concomitant]
     Dosage: UNK QD
     Dates: end: 20050708
  6. FOSAMAX [Concomitant]
     Dates: start: 20040101
  7. HERCEPTIN [Concomitant]
  8. ASPIRIN [Concomitant]
     Dosage: 81 MG UNK
     Dates: end: 20050708
  9. CURCUMEN [Concomitant]
     Dosage: 500 MG, QD
     Dates: end: 20050708
  10. ARTEMISININ [Concomitant]
     Dosage: 100 MG, QD
     Dates: end: 20050708
  11. CHEMOTHERAPEUTICS,OTHER [Concomitant]

REACTIONS (17)
  - BONE DEBRIDEMENT [None]
  - BONE DISORDER [None]
  - DENTAL OPERATION [None]
  - ENANTHEMA [None]
  - ENDODONTIC PROCEDURE [None]
  - GINGIVAL INFECTION [None]
  - GINGIVITIS [None]
  - IMPAIRED HEALING [None]
  - OEDEMA MUCOSAL [None]
  - ORAL PAIN [None]
  - ORAL SOFT TISSUE DISORDER [None]
  - OSTEONECROSIS [None]
  - PRIMARY SEQUESTRUM [None]
  - TOOTH ABSCESS [None]
  - TOOTH DISORDER [None]
  - TOOTH EXTRACTION [None]
  - X-RAY ABNORMAL [None]
